FAERS Safety Report 6138222-4 (Version None)
Quarter: 2009Q1

REPORT INFORMATION
  Report Type: 
  Country: None (occurrence: None)
  Receive Date: 20090331
  Receipt Date: 20090326
  Transmission Date: 20090719
  Serious: Yes (Death, Hospitalization)
  Sender: FDA-Public Use
  Company Number: A0775960A

PATIENT
  Sex: Female

DRUGS (3)
  1. SERETIDE [Suspect]
     Indication: BRONCHITIS
     Dates: start: 20090216, end: 20090323
  2. DIOVAN [Concomitant]
     Dates: start: 20081201, end: 20090323
  3. BAMIFIX [Concomitant]
     Dates: start: 20090101, end: 20090323

REACTIONS (1)
  - HAEMORRHAGE [None]
